FAERS Safety Report 10159006 (Version 1)
Quarter: 2014Q2

REPORT INFORMATION
  Report Type: Spontaneous
  Country: US (occurrence: US)
  Receive Date: 20140508
  Receipt Date: 20140508
  Transmission Date: 20141212
  Serious: No
  Sender: FDA-Public Use
  Company Number: US-BIOGENIDEC-2014BI040059

PATIENT
  Age: 43 Year
  Sex: Female

DRUGS (1)
  1. TECFIDERA [Suspect]
     Indication: MULTIPLE SCLEROSIS
     Route: 048
     Dates: start: 201209

REACTIONS (9)
  - Depression [Unknown]
  - Depressed mood [Unknown]
  - Feeling of despair [Unknown]
  - Decreased interest [Unknown]
  - Weight decreased [Unknown]
  - Flatulence [Unknown]
  - Anhedonia [Unknown]
  - Diarrhoea [Unknown]
  - Abdominal pain upper [Unknown]
